FAERS Safety Report 20134140 (Version 4)
Quarter: 2022Q1

REPORT INFORMATION
  Report Type: Report from Study
  Country: CH (occurrence: CH)
  Receive Date: 20211201
  Receipt Date: 20220103
  Transmission Date: 20220423
  Serious: Yes (Hospitalization)
  Sender: FDA-Public Use
  Company Number: CH-ABBVIE-21K-151-4180270-00

PATIENT
  Age: 64 Year
  Sex: Female

DRUGS (6)
  1. CARBIDOPA\LEVODOPA [Suspect]
     Active Substance: CARBIDOPA\LEVODOPA
     Indication: Parkinson^s disease
     Dosage: MD: 2.0 ML, CRD: 4.5 ML/H, CRN: 1.4 ML/H, ED: 1.5 ML
     Route: 050
     Dates: start: 20190927, end: 20191001
  2. CARBIDOPA\LEVODOPA [Suspect]
     Active Substance: CARBIDOPA\LEVODOPA
     Dosage: MD: 3.0 ML, CRD: 5.4 ML/H, CRN: 3.8 ML/H, ED: 2.5 ML
     Route: 050
     Dates: start: 20191001, end: 20210915
  3. CARBIDOPA\LEVODOPA [Suspect]
     Active Substance: CARBIDOPA\LEVODOPA
     Dosage: MD: 5.0 ML, CRD: 3.1 ML/H, CRN: 2.0 ML/H, ED: 2.0 ML
     Route: 050
     Dates: start: 20210915, end: 20210921
  4. CARBIDOPA\LEVODOPA [Suspect]
     Active Substance: CARBIDOPA\LEVODOPA
     Route: 050
     Dates: start: 20190921, end: 20210923
  5. CARBIDOPA\LEVODOPA [Suspect]
     Active Substance: CARBIDOPA\LEVODOPA
     Dosage: MD: 2.0 ML, CRD: 3.2 ML/H, CRN: 2.0 ML/H, ED: 2.0 ML
     Route: 050
     Dates: start: 20210927, end: 20211022
  6. CARBIDOPA\LEVODOPA [Suspect]
     Active Substance: CARBIDOPA\LEVODOPA
     Dosage: MD: 2.0 ML, CRD: 3.2 ML/H, CRN: 2.0 ML/H, ED: 2.0 ML
     Route: 050
     Dates: start: 20211022

REACTIONS (2)
  - Tremor [Unknown]
  - Device placement issue [Recovered/Resolved]

NARRATIVE: CASE EVENT DATE: 20211101
